FAERS Safety Report 22014389 (Version 1)
Quarter: 2023Q1

REPORT INFORMATION
  Report Type: Spontaneous
  Country: IT (occurrence: IT)
  Receive Date: 20230221
  Receipt Date: 20230221
  Transmission Date: 20230418
  Serious: Yes (Other)
  Sender: FDA-Public Use
  Company Number: None

PATIENT
  Age: 84 Year
  Sex: Male

DRUGS (3)
  1. ACYCLOVIR [Suspect]
     Active Substance: ACYCLOVIR
     Indication: Product used for unknown indication
     Dosage: DURATION : 11 DAYS
     Dates: start: 20221210, end: 20221221
  2. CEFTRIAXONE [Suspect]
     Active Substance: CEFTRIAXONE
     Indication: Product used for unknown indication
     Dosage: 4 GRAM DAILY; 2G 2 TIMES A DAY, DURATION : 11 DAYS
     Dates: start: 20221210, end: 20221221
  3. VANCOMYCIN [Suspect]
     Active Substance: VANCOMYCIN
     Indication: Product used for unknown indication
     Dosage: 1 GRAM DAILY; 1 G/DAY, UNIT DOSE : 1 GRAM, FREQUENCY : 1 IN 24 HOURS, DURATION : 10 DAYS
     Dates: start: 20221210, end: 20221220

REACTIONS (1)
  - Dermatitis exfoliative generalised [Recovering/Resolving]

NARRATIVE: CASE EVENT DATE: 20221221
